FAERS Safety Report 9130952 (Version 2)
Quarter: 2013Q1

REPORT INFORMATION
  Report Type: Report from Study
  Country: EE (occurrence: EE)
  Receive Date: 20130301
  Receipt Date: 20130314
  Transmission Date: 20140127
  Serious: Yes (Death, Life-Threatening, Hospitalization)
  Sender: FDA-Public Use
  Company Number: EE-MILLENNIUM PHARMACEUTICALS, INC.-2013-01190

PATIENT
  Sex: 0

DRUGS (11)
  1. VELCADE [Suspect]
     Indication: PLASMA CELL MYELOMA
     Dosage: UNK
     Route: 065
     Dates: start: 20120925, end: 20121006
  2. DEXAMETHASONE [Concomitant]
     Dosage: UNK
     Dates: start: 20120925, end: 20121006
  3. ONDANSETRON [Concomitant]
     Dosage: UNK
     Dates: start: 20120925, end: 20121006
  4. TAZOCIN [Concomitant]
     Dosage: UNK
     Dates: start: 20121011, end: 20121014
  5. CANCIDAS                           /01527901/ [Concomitant]
     Dosage: UNK
     Dates: start: 20121016, end: 201210
  6. DIFLUCAN [Concomitant]
     Dosage: UNK
     Dates: start: 20120930, end: 201210
  7. FORTUM /00559701/ [Concomitant]
     Dosage: UNK
     Dates: start: 20121014, end: 201210
  8. AMIKACIN [Concomitant]
     Dosage: UNK
     Dates: start: 20121014, end: 201210
  9. MERONEM                            /01250501/ [Concomitant]
     Dosage: UNK
     Dates: start: 20121016, end: 201210
  10. ZINACEF                            /00454601/ [Concomitant]
     Dosage: UNK
     Dates: start: 20120918, end: 20120928
  11. PAMIDRONATE [Concomitant]
     Dosage: UNK
     Dates: start: 20120928

REACTIONS (3)
  - Atrial fibrillation [Fatal]
  - Atrial flutter [Fatal]
  - Candida pneumonia [Unknown]
